FAERS Safety Report 4723820-2 (Version None)
Quarter: 2005Q3

REPORT INFORMATION
  Report Type: 
  Country: None (occurrence: None)
  Receive Date: 20050725
  Receipt Date: 20050531
  Transmission Date: 20060218
  Serious: Yes (Hospitalization, Other)
  Sender: FDA-Public Use
  Company Number: IN-BRISTOL-MYERS SQUIBB COMPANY-12987947

PATIENT
  Age: 33 Year
  Sex: Male

DRUGS (4)
  1. MEGACE [Suspect]
     Indication: HIV WASTING SYNDROME
     Route: 048
     Dates: start: 20050213
  2. LAMIVUDINE [Concomitant]
     Indication: HIV INFECTION
     Dates: start: 20041028
  3. STAVUDINE [Concomitant]
     Indication: HIV INFECTION
     Dates: start: 20041028
  4. NEVIRAPINE [Concomitant]
     Indication: HIV INFECTION
     Dates: start: 20041028

REACTIONS (1)
  - CARDIAC FAILURE CONGESTIVE [None]
